FAERS Safety Report 5773915-X (Version None)
Quarter: 2008Q2

REPORT INFORMATION
  Report Type: 
  Country: None (occurrence: None)
  Receive Date: 20080616
  Receipt Date: 20080606
  Transmission Date: 20081010
  Serious: Yes (Other)
  Sender: FDA-Public Use
  Company Number: B0524069A

PATIENT
  Sex: Male

DRUGS (1)
  1. LAMICTAL [Suspect]
     Indication: DRUG USE FOR UNKNOWN INDICATION
     Dosage: 400MG PER DAY
     Route: 048

REACTIONS (4)
  - GINGIVAL ATROPHY [None]
  - GINGIVAL DISORDER [None]
  - SLEEP DISORDER [None]
  - TOOTH LOSS [None]
